FAERS Safety Report 18541067 (Version 3)
Quarter: 2021Q1

REPORT INFORMATION
  Report Type: Spontaneous
  Country: US (occurrence: US)
  Receive Date: 20201124
  Receipt Date: 20210112
  Transmission Date: 20210419
  Serious: No
  Sender: FDA-Public Use
  Company Number: US-PFIZER INC-2020463797

PATIENT
  Age: 49 Year
  Sex: Female

DRUGS (3)
  1. HYDROCODONE [Interacting]
     Active Substance: HYDROCODONE
     Dosage: UNK
  2. IBRANCE [Suspect]
     Active Substance: PALBOCICLIB
     Dosage: 125 MG
     Dates: start: 20201101
  3. IBRANCE [Interacting]
     Active Substance: PALBOCICLIB
     Dosage: 125 MG
     Dates: start: 20201108

REACTIONS (6)
  - Tinnitus [Unknown]
  - Drug interaction [Unknown]
  - Urine odour abnormal [Unknown]
  - Nausea [Unknown]
  - Diarrhoea [Unknown]
  - Chromaturia [Unknown]
